FAERS Safety Report 9814411 (Version 1)
Quarter: 2014Q1

REPORT INFORMATION
  Report Type: Spontaneous
  Country: US (occurrence: US)
  Receive Date: 20140113
  Receipt Date: 20140113
  Transmission Date: 20141002
  Serious: No
  Sender: FDA-Public Use
  Company Number: US-GILEAD-2013-0084990

PATIENT
  Sex: Female

DRUGS (1)
  1. LETAIRIS [Suspect]
     Indication: INTERSTITIAL LUNG DISEASE
     Dosage: 10 MG, QD
     Dates: start: 20100217, end: 20131001

REACTIONS (1)
  - Disease progression [Unknown]
